FAERS Safety Report 4294192-5 (Version None)
Quarter: 2004Q1

REPORT INFORMATION
  Report Type: 
  Country: None (occurrence: None)
  Receive Date: 20040211
  Receipt Date: 20040211
  Transmission Date: 20041129
  Serious: Yes (Other)
  Sender: FDA-Public Use
  Company Number: None

PATIENT
  Age: 68 Year
  Sex: Male

DRUGS (7)
  1. FLUOROURACIL [Suspect]
     Indication: COLON CANCER
     Dosage: 445 MG IVP, 1330 MG IV OVER 22  HR X DAY 1+2
     Route: 042
     Dates: start: 20031009, end: 20040204
  2. ZANTAC [Concomitant]
  3. OXALIPLATIN [Concomitant]
  4. LEUCOVORIN CALCIUM [Concomitant]
  5. ZOFRAN [Concomitant]
  6. TORECAN [Concomitant]
  7. ATIVAN [Concomitant]

REACTIONS (1)
  - HYPOAESTHESIA [None]
